FAERS Safety Report 19768229 (Version 1)
Quarter: 2021Q3

REPORT INFORMATION
  Report Type: Spontaneous
  Country: US (occurrence: US)
  Receive Date: 20210831
  Receipt Date: 20210831
  Transmission Date: 20211014
  Serious: Yes (Death, Hospitalization)
  Sender: FDA-Public Use
  Company Number: None

PATIENT
  Sex: Male

DRUGS (1)
  1. EMGALITY [Suspect]
     Active Substance: GALCANEZUMAB-GNLM
     Indication: MIGRAINE
     Dosage: ?          QUANTITY:1 INJECTION(S);OTHER FREQUENCY:1 INJECTION X4WEEK;OTHER ROUTE:INJECTION?
     Dates: start: 20210101, end: 20210831

REACTIONS (6)
  - Muscular weakness [None]
  - Anxiety [None]
  - Abdominal pain upper [None]
  - Mood altered [None]
  - Tinnitus [None]
  - Insomnia [None]

NARRATIVE: CASE EVENT DATE: 20210803
